FAERS Safety Report 5049712-X (Version None)
Quarter: 2006Q3

REPORT INFORMATION
  Report Type: 
  Country: None (occurrence: None)
  Receive Date: 20060707
  Receipt Date: 20060627
  Transmission Date: 20061208
  Serious: No
  Sender: FDA-Public Use
  Company Number: 224720

PATIENT
  Age: 50 Year
  Sex: Male
  Weight: 68.9 kg

DRUGS (4)
  1. AVASTIN [Suspect]
     Indication: PANCREATIC CARCINOMA
     Dosage: 600 MG, 1/WEEK; INTRAVENOUS
     Route: 042
     Dates: end: 20060414
  2. GEMZAR [Concomitant]
  3. ASPIRIN [Concomitant]
  4. NSAIDS (NON-STEROIDAL ANTI-INFLAMMATORY DRUG NOS) [Concomitant]

REACTIONS (3)
  - GASTRIC ULCER PERFORATION [None]
  - NEOPLASM [None]
  - PERITONITIS [None]
